FAERS Safety Report 17235411 (Version 1)
Quarter: 2020Q1

REPORT INFORMATION
  Report Type: Spontaneous
  Country: US (occurrence: US)
  Receive Date: 20200106
  Receipt Date: 20200106
  Transmission Date: 20200409
  Serious: Yes (Other)
  Sender: FDA-Public Use
  Company Number: US-AMGEN-USASP2019217826

PATIENT
  Age: 94 Year
  Sex: Male
  Weight: 73.5 kg

DRUGS (1)
  1. PROCRIT [Suspect]
     Active Substance: ERYTHROPOIETIN
     Indication: ANAEMIA
     Dosage: 40000 UNIT, QMO (MONTHLY IF HEMOGLOBIN LESS THAN 10)
     Route: 065
     Dates: start: 201910

REACTIONS (2)
  - Transfusion [Unknown]
  - Blood pressure increased [Unknown]

NARRATIVE: CASE EVENT DATE: 20191224
